FAERS Safety Report 8194144-9 (Version None)
Quarter: 2012Q1

REPORT INFORMATION
  Report Type: 
  Country: None (occurrence: None)
  Receive Date: 20120308
  Receipt Date: 20120305
  Transmission Date: 20120608
  Serious: Yes (Hospitalization, Other)
  Sender: FDA-Public Use
  Company Number: GB-ABBOTT-12P-167-0912236-00

PATIENT
  Sex: Female
  Weight: 70 kg

DRUGS (2)
  1. LEFLUNOMAIDE [Concomitant]
     Indication: PRODUCT USED FOR UNKNOWN INDICATION
     Dates: end: 20110412
  2. HUMIRA [Suspect]
     Indication: RHEUMATOID ARTHRITIS
     Route: 058
     Dates: start: 20080104, end: 20110412

REACTIONS (6)
  - HEMIPARESIS [None]
  - PLEURITIC PAIN [None]
  - CEREBROVASCULAR ACCIDENT [None]
  - PULMONARY EMBOLISM [None]
  - DYSPNOEA [None]
  - HAEMORRHAGIC STROKE [None]
